FAERS Safety Report 4665955-9 (Version None)
Quarter: 2005Q2

REPORT INFORMATION
  Report Type: 
  Country: None (occurrence: None)
  Receive Date: 20050517
  Receipt Date: 20050407
  Transmission Date: 20051028
  Serious: No
  Sender: FDA-Public Use
  Company Number: S05-USA-01835-01

PATIENT
  Age: 70 Year
  Sex: Female

DRUGS (22)
  1. NAMENDA [Suspect]
     Indication: AMNESIA
     Dosage: 5 MG QD PO
     Route: 048
     Dates: start: 20050314, end: 20050320
  2. NAMENDA [Suspect]
     Indication: AMNESIA
     Dosage: 5 MG BID PO
     Route: 048
     Dates: start: 20050321, end: 20050327
  3. NAMENDA [Suspect]
     Indication: AMNESIA
     Dosage: 15 MG QD PO
     Route: 048
     Dates: start: 20050328, end: 20050403
  4. NAMENDA [Suspect]
     Indication: AMNESIA
     Dosage: 10 MG BID PO
     Route: 048
     Dates: start: 20050404
  5. COUMADIN [Suspect]
     Indication: HEART VALVE REPLACEMENT
     Dosage: 5 MG PO
     Route: 048
     Dates: start: 20001201, end: 20050316
  6. COUMADIN [Suspect]
     Indication: HEART VALVE REPLACEMENT
     Dosage: 6 MG BIW PO
     Route: 048
     Dates: start: 20001201, end: 20050316
  7. COUMADIN [Suspect]
     Indication: HEART VALVE REPLACEMENT
     Dosage: 5 MG QHS PO
     Route: 048
     Dates: start: 20050317
  8. NORVASC [Concomitant]
  9. HYDROCHLOROTHIAZIDE [Concomitant]
  10. ZOCOR [Concomitant]
  11. ARICEPT [Concomitant]
  12. LEVOTHYROXINE [Concomitant]
  13. LEXAPRO [Concomitant]
  14. MAGNESIUM [Concomitant]
  15. PROVIGIL [Concomitant]
  16. LANSOPRAZOLE [Concomitant]
  17. DITROPAN [Concomitant]
  18. VITAMIN E [Concomitant]
  19. ESTROGEN [Concomitant]
  20. CALCIUM GLUCONATE [Concomitant]
  21. MULTI-VITAMIN [Concomitant]
  22. VITAMIN B-12 [Concomitant]

REACTIONS (1)
  - INTERNATIONAL NORMALISED RATIO INCREASED [None]
